FAERS Safety Report 7944915-6 (Version None)
Quarter: 2011Q4

REPORT INFORMATION
  Report Type: 
  Country: None (occurrence: None)
  Receive Date: 20111129
  Receipt Date: 20111011
  Transmission Date: 20120403
  Serious: No
  Sender: FDA-Public Use
  Company Number: US-MYLANLABS-2011S1021321

PATIENT
  Age: 60 Year
  Sex: Female

DRUGS (4)
  1. KEPPRA [Suspect]
     Route: 048
     Dates: start: 20110914, end: 20110924
  2. LEVETIRACETAM [Suspect]
     Route: 048
     Dates: start: 20110925
  3. PAIN MEDICATIONS [Concomitant]
     Route: 042
     Dates: start: 20110914, end: 20110924
  4. ZOLOFT [Concomitant]
     Indication: DEPRESSION
     Dates: end: 20110914

REACTIONS (4)
  - ABNORMAL BEHAVIOUR [None]
  - IRRITABILITY [None]
  - ANGER [None]
  - AGITATION [None]
